FAERS Safety Report 13937427 (Version 2)
Quarter: 2017Q3

REPORT INFORMATION
  Report Type: Spontaneous
  Country: KR (occurrence: KR)
  Receive Date: 20170905
  Receipt Date: 20170926
  Transmission Date: 20171127
  Serious: Yes (Hospitalization)
  Sender: FDA-Public Use
  Company Number: KR-JNJFOC-20170826877

PATIENT
  Age: 35 Year
  Sex: Male

DRUGS (1)
  1. TOPIRAMATE. [Suspect]
     Active Substance: TOPIRAMATE
     Indication: MIGRAINE PROPHYLAXIS
     Route: 048

REACTIONS (3)
  - Headache [Unknown]
  - Central nervous system lesion [Recovered/Resolved]
  - Hypoaesthesia [Recovered/Resolved]
